FAERS Safety Report 12488732 (Version 1)
Quarter: 2016Q2

REPORT INFORMATION
  Report Type: Spontaneous
  Country: GB (occurrence: GB)
  Receive Date: 20160622
  Receipt Date: 20160622
  Transmission Date: 20160815
  Serious: Yes (Other)
  Sender: FDA-Public Use
  Company Number: GB-CONCORDIA PHARMACEUTICALS INC.-GSH201606-003128

PATIENT
  Age: 53 Year
  Sex: Female
  Weight: 82 kg

DRUGS (16)
  1. TRAZODONE [Concomitant]
     Active Substance: TRAZODONE HYDROCHLORIDE
     Dosage: AT NIGHT
     Route: 048
     Dates: start: 20151201
  2. OXYTETRACYCLINE [Concomitant]
     Active Substance: OXYTETRACYCLINE
     Dates: start: 20160315, end: 20160322
  3. PREDNISOLONE. [Suspect]
     Active Substance: PREDNISOLONE
     Dates: start: 20160609
  4. CYCLIZINE [Concomitant]
     Active Substance: CYCLIZINE
     Dosage: UP TO A MAXIMUM OF THREE TIMES DAILY.
     Dates: start: 20160607
  5. FLUOXETINE [Concomitant]
     Active Substance: FLUOXETINE HYDROCHLORIDE
     Dates: start: 20151201
  6. HYDROXYCHLOROQUINE SULFATE. [Concomitant]
     Active Substance: HYDROXYCHLOROQUINE SULFATE
     Dosage: SHARED CARE BE INITIATED BY A SPECIALIST ONLY
     Dates: start: 20160106
  7. MORPHINE SULFATE. [Concomitant]
     Active Substance: MORPHINE SULFATE
     Dosage: UP TO 4 TIMES A DAY
     Dates: start: 20151201
  8. ZOLMITRIPTAN. [Concomitant]
     Active Substance: ZOLMITRIPTAN
     Indication: MIGRAINE
     Dosage: AT ONSET OF MIGRAINE.  IF NO RESPONSE ...
     Dates: start: 20151201
  9. GABAPENTIN. [Concomitant]
     Active Substance: GABAPENTIN
     Route: 048
     Dates: start: 20151201
  10. NITROFURANTOIN. [Concomitant]
     Active Substance: NITROFURANTOIN
     Dates: start: 20160531, end: 20160607
  11. ZOMORPH [Concomitant]
     Active Substance: MORPHINE SULFATE
     Dosage: TAKE ONE OR TWO EVERY 12 HOURS
     Dates: start: 20151201
  12. DICLOFENAC SODIUM. [Concomitant]
     Active Substance: DICLOFENAC SODIUM
     Dosage: WITH FOOD
     Dates: start: 20160315
  13. HYPROMELLOSE [Concomitant]
     Active Substance: HYPROMELLOSES
     Dates: start: 20151201
  14. FEXOFENADINE [Concomitant]
     Active Substance: FEXOFENADINE\FEXOFENADINE HYDROCHLORIDE
     Dates: start: 20151201
  15. METHOTREXATE [Concomitant]
     Active Substance: METHOTREXATE
     Dosage: 4 TABLETS
     Dates: start: 20160607
  16. RABEPRAZOLE [Concomitant]
     Active Substance: RABEPRAZOLE
     Dates: start: 20151201

REACTIONS (1)
  - Swelling face [Unknown]

NARRATIVE: CASE EVENT DATE: 20160609
